FAERS Safety Report 8387808-5 (Version None)
Quarter: 2012Q2

REPORT INFORMATION
  Report Type: 
  Country: None (occurrence: None)
  Receive Date: 20120525
  Receipt Date: 20120502
  Transmission Date: 20120825
  Serious: No
  Sender: FDA-Public Use
  Company Number: US-BRISTOL-MYERS SQUIBB COMPANY-16567414

PATIENT
  Age: 62 Year
  Sex: Male
  Weight: 91 kg

DRUGS (1)
  1. KOMBIGLYZE XR [Suspect]
     Dosage: 1DF: 2.5/1000 UNS INCREASED TO 2 TABS

REACTIONS (2)
  - VOMITING [None]
  - MALAISE [None]
